FAERS Safety Report 20678857 (Version 1)
Quarter: 2022Q2

REPORT INFORMATION
  Report Type: Spontaneous
  Country: US (occurrence: None)
  Receive Date: 20220404
  Receipt Date: 20220404
  Transmission Date: 20220720
  Serious: No
  Sender: FDA-Public Use
  Company Number: None

PATIENT
  Age: 57 Year
  Sex: Female

DRUGS (1)
  1. EVEROLIMUS [Suspect]
     Active Substance: EVEROLIMUS
     Indication: Product used for unknown indication
     Dosage: FREQUENCY : DAILY;?
     Route: 048
     Dates: start: 202107, end: 202203

REACTIONS (1)
  - Disease progression [None]

NARRATIVE: CASE EVENT DATE: 20220331
